APPROVED DRUG PRODUCT: XTANDI
Active Ingredient: ENZALUTAMIDE
Strength: 40MG
Dosage Form/Route: TABLET;ORAL
Application: N213674 | Product #001
Applicant: ASTELLAS PHARMA US INC
Approved: Aug 4, 2020 | RLD: Yes | RS: No | Type: RX

PATENTS:
Patent 12502357 | Expires: Sep 11, 2033
Patent 12502357 | Expires: Sep 11, 2033
Patent 12502357 | Expires: Sep 11, 2033
Patent 12161628 | Expires: Feb 23, 2037
Patent 12161628 | Expires: Feb 23, 2037
Patent 12161628 | Expires: Feb 23, 2037
Patent 12161628 | Expires: Feb 23, 2037
Patent 8183274 | Expires: Aug 24, 2026
Patent 8183274 | Expires: Aug 24, 2026
Patent 9126941 | Expires: May 15, 2026
Patent 9126941 | Expires: May 15, 2026
Patent 8183274 | Expires: Aug 24, 2026
Patent 9126941 | Expires: May 15, 2026
Patent 7709517 | Expires: Aug 13, 2027
Patent 11839689 | Expires: Sep 11, 2033

EXCLUSIVITY:
Code: I-926 | Date: Nov 17, 2026